FAERS Safety Report 8079921-7 (Version None)
Quarter: 2012Q1

REPORT INFORMATION
  Report Type: 
  Country: None (occurrence: None)
  Receive Date: 20120128
  Receipt Date: 20110722
  Transmission Date: 20120608
  Serious: No
  Sender: FDA-Public Use
  Company Number: US-ABBOTT-11P-163-0841260-00

PATIENT
  Age: 53 Year
  Sex: Female

DRUGS (9)
  1. HUMIRA [Suspect]
     Indication: PSORIATIC ARTHROPATHY
     Dates: start: 20110301
  2. LISINOPRIL [Concomitant]
     Indication: HYPERTENSION
  3. AMBIEN [Concomitant]
     Indication: INSOMNIA
     Dosage: AT BEDTIME
  4. LEVOTHYROXINE SODIUM [Concomitant]
     Indication: THYROID DISORDER
  5. ASPIRIN [Concomitant]
     Indication: ROUTINE HEALTH MAINTENANCE
  6. HYDROXYZINE [Concomitant]
     Indication: INSOMNIA
     Dosage: 15 BEDTIME
  7. CLOTRIMAZOLE [Concomitant]
     Indication: PSORIASIS
  8. PRILOSEC [Concomitant]
     Indication: PSORIASIS
  9. CLARITIN [Concomitant]
     Indication: HYPERSENSITIVITY

REACTIONS (1)
  - FURUNCLE [None]
